FAERS Safety Report 5171418-7 (Version None)
Quarter: 2006Q4

REPORT INFORMATION
  Report Type: 
  Country: None (occurrence: None)
  Receive Date: 20061213
  Receipt Date: 20051129
  Transmission Date: 20070319
  Serious: Yes (Other)
  Sender: FDA-Public Use
  Company Number: US-AMGEN-US159498

PATIENT
  Sex: Female

DRUGS (9)
  1. ENBREL [Suspect]
     Indication: RHEUMATOID ARTHRITIS
     Dates: start: 20031001
  2. ARAVA [Concomitant]
  3. PREDNISONE TAB [Concomitant]
  4. NEURONTIN [Concomitant]
  5. THYROXIN T3 [Concomitant]
  6. LIPITOR [Concomitant]
  7. RESTORIL [Concomitant]
  8. NORVASC [Concomitant]
  9. BACLOFEN [Concomitant]

REACTIONS (2)
  - ESCHERICHIA INFECTION [None]
  - UROSEPSIS [None]
